FAERS Safety Report 8698190 (Version 2)
Quarter: 2013Q4

REPORT INFORMATION
  Report Type: Spontaneous
  Country: US (occurrence: US)
  Receive Date: 20120802
  Receipt Date: 20131031
  Transmission Date: 20140711
  Serious: Yes (Other)
  Sender: FDA-Public Use
  Company Number: US-009507513-1207USA011406

PATIENT
  Age: 59 Year
  Sex: Male

DRUGS (4)
  1. ZOCOR [Suspect]
     Dosage: 40 MG, QD
     Route: 048
  2. BISOPROLOL FUMARATE [Concomitant]
  3. ASPIRIN [Concomitant]
  4. RAMIPRIL [Concomitant]

REACTIONS (13)
  - Disease recurrence [Unknown]
  - Angina unstable [Unknown]
  - Palpitations [Unknown]
  - Atrial flutter [Unknown]
  - Electrocardiogram ST-T segment depression [Unknown]
  - Coronary artery stenosis [Unknown]
  - Blood pressure difference of extremities [Unknown]
  - Low density lipoprotein increased [Unknown]
  - Vascular graft complication [Unknown]
  - Subclavian artery occlusion [Unknown]
  - Drug ineffective [Unknown]
  - Vascular graft occlusion [Unknown]
  - Coronary artery occlusion [Unknown]
